FAERS Safety Report 19858961 (Version 1)
Quarter: 2021Q3

REPORT INFORMATION
  Report Type: Spontaneous
  Country: US (occurrence: US)
  Receive Date: 20210921
  Receipt Date: 20210921
  Transmission Date: 20211014
  Serious: No
  Sender: FDA-Public Use
  Company Number: US-CELLTRION INC.-2020US027989

PATIENT

DRUGS (1)
  1. INFLECTRA [Suspect]
     Active Substance: INFLIXIMAB-DYYB
     Indication: COLITIS ULCERATIVE
     Dosage: 300 MG EVERY 6 WEEKS
     Route: 065
     Dates: start: 201704

REACTIONS (8)
  - Eye pruritus [Unknown]
  - Drug ineffective [Unknown]
  - Weight increased [Unknown]
  - Symptom recurrence [Unknown]
  - Peripheral swelling [Unknown]
  - Product use issue [Unknown]
  - Eye irritation [Unknown]
  - Diplopia [Unknown]
